FAERS Safety Report 9644176 (Version 3)
Quarter: 2013Q4

REPORT INFORMATION
  Report Type: Report from Study
  Country: DE (occurrence: DE)
  Receive Date: 20131024
  Receipt Date: 20131028
  Transmission Date: 20140711
  Serious: Yes (Death, Other)
  Sender: FDA-Public Use
  Company Number: DE-ABBVIE-13P-062-1051997-00

PATIENT
  Age: 84 Year
  Sex: Male

DRUGS (5)
  1. TRENANTONE [Suspect]
     Indication: PROSTATE CANCER
     Route: 058
     Dates: start: 20121015, end: 20130416
  2. TRENANTONE [Suspect]
     Indication: PROSTATIC SPECIFIC ANTIGEN INCREASED
  3. TRENANTONE [Suspect]
     Indication: RADICAL PROSTATECTOMY
  4. ANTIANDROGENS [Concomitant]
     Indication: PRODUCT USED FOR UNKNOWN INDICATION
     Dates: start: 20121015
  5. VITAMIN K ANTAGONISTS [Concomitant]

REACTIONS (3)
  - Cerebrovascular accident [Fatal]
  - Incontinence [Recovered/Resolved]
  - Hot flush [Not Recovered/Not Resolved]
